FAERS Safety Report 17646462 (Version 1)
Quarter: 2020Q2

REPORT INFORMATION
  Report Type: Spontaneous
  Country: US (occurrence: US)
  Receive Date: 20200408
  Receipt Date: 20200408
  Transmission Date: 20200713
  Serious: No
  Sender: FDA-Public Use
  Company Number: US-VERTEX PHARMACEUTICALS-2020-002437

PATIENT
  Age: 32 Year
  Sex: Female

DRUGS (1)
  1. TRIKAFTA [Suspect]
     Active Substance: ELEXACAFTOR\IVACAFTOR\TEZACAFTOR
     Indication: CYSTIC FIBROSIS
     Dosage: 2 TABS IN MORNING, 1 TAB IN THE EVENING, BID
     Route: 048
     Dates: start: 20191114

REACTIONS (4)
  - Hepatic pain [Recovered/Resolved]
  - Abdominal pain upper [Recovering/Resolving]
  - Abdominal distension [Recovering/Resolving]
  - Cough [Unknown]

NARRATIVE: CASE EVENT DATE: 201911
